FAERS Safety Report 24897875 (Version 1)
Quarter: 2025Q1

REPORT INFORMATION
  Report Type: Spontaneous
  Country: AU (occurrence: AU)
  Receive Date: 20250129
  Receipt Date: 20250129
  Transmission Date: 20250408
  Serious: Yes (Hospitalization, Other)
  Sender: JOHNSON AND JOHNSON
  Company Number: AU-JNJFOC-20250134300

PATIENT
  Age: 66 Year
  Sex: Male

DRUGS (5)
  1. UPTRAVI [Suspect]
     Active Substance: SELEXIPAG
     Indication: Pulmonary arterial hypertension
     Route: 048
  2. UPTRAVI [Suspect]
     Active Substance: SELEXIPAG
     Route: 048
  3. UPTRAVI [Suspect]
     Active Substance: SELEXIPAG
     Route: 048
  4. MACITENTAN [Concomitant]
     Active Substance: MACITENTAN
  5. SILDENAFIL [Concomitant]
     Active Substance: SILDENAFIL

REACTIONS (7)
  - Pulmonary hypertension [Unknown]
  - Arrhythmia [Unknown]
  - Headache [Unknown]
  - Myalgia [Unknown]
  - Nausea [Recovering/Resolving]
  - Diarrhoea [Unknown]
  - Weight decreased [Unknown]
